FAERS Safety Report 6489738-2 (Version None)
Quarter: 2009Q4

REPORT INFORMATION
  Report Type: 
  Country: None (occurrence: None)
  Receive Date: 20091207
  Receipt Date: 20091123
  Transmission Date: 20100525
  Serious: Yes (Death)
  Sender: FDA-Public Use
  Company Number: 2009AC000047

PATIENT
  Age: 84 Year
  Sex: Female

DRUGS (20)
  1. DIGOXIN [Suspect]
     Dosage: 0.125 MG;QD;PO
     Route: 048
     Dates: start: 20060201, end: 20080201
  2. FUROSEMIDE [Concomitant]
  3. MECLIZINE [Concomitant]
  4. ALPRAZOLAM [Concomitant]
  5. XALATAN [Concomitant]
  6. TIMOLOL MALEATE [Concomitant]
  7. ALLOPURINOL [Concomitant]
  8. ATACAND HCT [Concomitant]
  9. VITAPLEX [Concomitant]
  10. DILTIAZEM HCL [Concomitant]
  11. RENAX [Concomitant]
  12. AVANDIA [Concomitant]
  13. VITAMIN D [Concomitant]
  14. AMOXICILLIN [Concomitant]
  15. RENAGEL [Concomitant]
  16. ACTOS [Concomitant]
  17. ARANESP [Concomitant]
  18. IRON [Concomitant]
  19. LIPITOR [Concomitant]
  20. QUINIDINE HCL [Concomitant]

REACTIONS (17)
  - ANHEDONIA [None]
  - BACK PAIN [None]
  - CARDIAC FAILURE [None]
  - CHEST PAIN [None]
  - DIARRHOEA [None]
  - DYSPNOEA [None]
  - EMOTIONAL DISORDER [None]
  - MENTAL DISORDER [None]
  - MULTIPLE INJURIES [None]
  - MYOCARDIAL INFARCTION [None]
  - PAIN [None]
  - PULMONARY OEDEMA [None]
  - RESPIRATORY FAILURE [None]
  - TACHYCARDIA [None]
  - UNEVALUABLE EVENT [None]
  - URINE OUTPUT DECREASED [None]
  - VOMITING [None]
